FAERS Safety Report 26012646 (Version 1)
Quarter: 2025Q4

REPORT INFORMATION
  Report Type: Spontaneous
  Country: US (occurrence: US)
  Receive Date: 20251107
  Receipt Date: 20251107
  Transmission Date: 20260117
  Serious: Yes (Other)
  Sender: ALEMBIC
  Company Number: US-ALEMBIC PHARMACUETICALS LIMITED-2025SCAL001484

PATIENT

DRUGS (4)
  1. GLYCOPYRROLATE [Suspect]
     Active Substance: GLYCOPYRROLATE
     Indication: Bradycardia
     Dosage: TWO SEPARATE PUSHES OF 0.2 MG GLYCOPYRROLATE IV 3 MINUTES APART
     Route: 042
  2. DEXMEDETOMIDINE [Suspect]
     Active Substance: DEXMEDETOMIDINE
     Indication: Anaesthesia
     Dosage: 0.6 MCG/KG
     Route: 042
  3. DEXMEDETOMIDINE [Suspect]
     Active Substance: DEXMEDETOMIDINE
     Dosage: MICROGRAM PER KILOGRAM PER HOUR
     Route: 042
  4. FENTANYL [Concomitant]
     Active Substance: FENTANYL
     Indication: Anaesthesia
     Dosage: 25 MICROGRAM
     Route: 042

REACTIONS (11)
  - Acute pulmonary oedema [Recovered/Resolved]
  - Hypertensive crisis [Recovered/Resolved]
  - Dyspnoea [Recovered/Resolved]
  - Hypoxia [Recovered/Resolved]
  - Ventricular hyperkinesia [Recovered/Resolved]
  - Lung opacity [Recovered/Resolved]
  - Rales [Recovered/Resolved]
  - Increased bronchial secretion [Recovered/Resolved]
  - Chromaturia [Recovered/Resolved]
  - Tachypnoea [Recovered/Resolved]
  - Drug interaction [Unknown]
